FAERS Safety Report 14370898 (Version 1)
Quarter: 2018Q1

REPORT INFORMATION
  Report Type: Spontaneous
  Country: DE (occurrence: DE)
  Receive Date: 20180110
  Receipt Date: 20180110
  Transmission Date: 20180509
  Serious: Yes (Other)
  Sender: FDA-Public Use
  Company Number: DE-SUN PHARMACEUTICAL INDUSTRIES LTD-2018R1-159311

PATIENT
  Age: 79 Year
  Sex: Male

DRUGS (1)
  1. VALSARTAN/HYDROCHLOROTHIAZIDE [Suspect]
     Active Substance: HYDROCHLOROTHIAZIDE\VALSARTAN
     Indication: PRODUCT USED FOR UNKNOWN INDICATION
     Dosage: 1 DF, DAILY
     Route: 048
     Dates: start: 20171124, end: 20171130

REACTIONS (19)
  - Muscular weakness [Unknown]
  - Decreased appetite [Unknown]
  - Toothache [Unknown]
  - Dysgeusia [Unknown]
  - Gingivitis [Unknown]
  - Lip blister [Unknown]
  - Gait disturbance [Unknown]
  - Visual impairment [Unknown]
  - Vision blurred [Unknown]
  - Insomnia [Unknown]
  - Renal pain [Unknown]
  - Myalgia [Unknown]
  - Dysphagia [Unknown]
  - Dyspnoea [Unknown]
  - Diarrhoea [Unknown]
  - Muscle twitching [Unknown]
  - Tonsillar inflammation [Unknown]
  - Arthralgia [Unknown]
  - Abdominal pain upper [Unknown]

NARRATIVE: CASE EVENT DATE: 201709
